FAERS Safety Report 16034823 (Version 1)
Quarter: 2019Q1

REPORT INFORMATION
  Report Type: Spontaneous
  Country: US (occurrence: US)
  Receive Date: 20190305
  Receipt Date: 20190305
  Transmission Date: 20190418
  Serious: Yes (Other)
  Sender: FDA-Public Use
  Company Number: US-TEVA-2019-US-1020255

PATIENT
  Sex: Female

DRUGS (1)
  1. MINOXIDIL 2 % TEVA [Suspect]
     Active Substance: MINOXIDIL
     Route: 065

REACTIONS (3)
  - Product formulation issue [None]
  - Blood pressure increased [Unknown]
  - Adverse event [Unknown]
